FAERS Safety Report 7708692-6 (Version None)
Quarter: 2011Q3

REPORT INFORMATION
  Report Type: 
  Country: None (occurrence: None)
  Receive Date: 20110819
  Receipt Date: 20110803
  Transmission Date: 20111222
  Serious: Yes (Hospitalization)
  Sender: FDA-Public Use
  Company Number: 2011MA008967

PATIENT
  Age: 51 Year
  Sex: Male

DRUGS (9)
  1. SPIRONOLACTONE [Suspect]
     Indication: CORONARY ARTERY DISEASE
     Dosage: 50 MG;QD;
  2. ISOSORBIDE MONONITRATE [Suspect]
     Indication: CORONARY ARTERY DISEASE
     Dosage: 60 MG;
  3. INSULIN [Suspect]
     Indication: CORONARY ARTERY DISEASE
  4. QUINAPRIL HCL [Suspect]
     Indication: CORONARY ARTERY DISEASE
     Dosage: 20 MG;BID;
  5. ASPIRIN [Suspect]
     Indication: CORONARY ARTERY DISEASE
     Dosage: 75 MG;UNK;
  6. INDAPAMIDE [Suspect]
     Indication: CORONARY ARTERY DISEASE
     Dosage: 1.5 MG;
  7. SIMVASTATIN [Suspect]
     Indication: CORONARY ARTERY DISEASE
     Dosage: 20 MG;QD;
  8. BISOPROLOL FUMARATE [Suspect]
     Indication: CORONARY ARTERY DISEASE
     Dosage: 10 MG;
  9. AMLODIPINE [Suspect]
     Indication: CORONARY ARTERY DISEASE
     Dosage: 10 MG;

REACTIONS (20)
  - BLOOD CREATININE INCREASED [None]
  - VENTRICULAR HYPOKINESIA [None]
  - HAEMATOCRIT DECREASED [None]
  - CREATININE RENAL CLEARANCE DECREASED [None]
  - HAEMOGLOBIN DECREASED [None]
  - HEART RATE DECREASED [None]
  - MYOCARDIAL INFARCTION [None]
  - HYPERKALAEMIA [None]
  - CONFUSIONAL STATE [None]
  - ATRIOVENTRICULAR BLOCK COMPLETE [None]
  - SYNCOPE [None]
  - METABOLIC ACIDOSIS [None]
  - DIARRHOEA [None]
  - RHYTHM IDIOVENTRICULAR [None]
  - DEHYDRATION [None]
  - MITRAL VALVE INCOMPETENCE [None]
  - RHABDOMYOLYSIS [None]
  - TRICUSPID VALVE INCOMPETENCE [None]
  - CORONARY ARTERY DISEASE [None]
  - CORONARY ARTERY STENOSIS [None]
